FAERS Safety Report 8921152 (Version 5)
Quarter: 2013Q4

REPORT INFORMATION
  Report Type: Spontaneous
  Country: US (occurrence: US)
  Receive Date: 20121122
  Receipt Date: 20131018
  Transmission Date: 20140711
  Serious: Yes (Hospitalization, Other)
  Sender: FDA-Public Use
  Company Number: US-009507513-1211USA006827

PATIENT
  Age: 58 Year
  Sex: Female

DRUGS (3)
  1. PEG-INTRON [Suspect]
     Indication: CHRONIC HEPATITIS C
     Dosage: UNK
     Dates: start: 20121107, end: 20130615
  2. RIBAVIRIN [Suspect]
     Indication: CHRONIC HEPATITIS C
     Dosage: UNK
     Dates: start: 20121107, end: 20130615
  3. INSULIN [Concomitant]
     Indication: DIABETES MELLITUS
     Dosage: UNK

REACTIONS (30)
  - Fall [Unknown]
  - Muscle spasms [Unknown]
  - Memory impairment [Unknown]
  - Pyrexia [Unknown]
  - Headache [Unknown]
  - Chills [Unknown]
  - Headache [Unknown]
  - Diarrhoea [Unknown]
  - Dizziness [Unknown]
  - Pyrexia [Unknown]
  - Myalgia [Unknown]
  - Fall [Unknown]
  - Pollakiuria [Unknown]
  - Cystitis [Unknown]
  - Fungal infection [Unknown]
  - Decreased appetite [Unknown]
  - Depression [Unknown]
  - Memory impairment [Unknown]
  - Confusional state [Unknown]
  - Chills [Unknown]
  - Pyrexia [Unknown]
  - Headache [Unknown]
  - Memory impairment [Unknown]
  - Ataxia [Unknown]
  - Fatigue [Unknown]
  - Decreased appetite [Unknown]
  - Muscle spasms [Unknown]
  - Malaise [Unknown]
  - Nervous system disorder [Unknown]
  - Asthenia [Unknown]
